FAERS Safety Report 7476563-9 (Version None)
Quarter: 2011Q2

REPORT INFORMATION
  Report Type: 
  Country: None (occurrence: None)
  Receive Date: 20110512
  Receipt Date: 20110428
  Transmission Date: 20111010
  Serious: Yes (Other)
  Sender: FDA-Public Use
  Company Number: US-JNJFOC-20110412522

PATIENT
  Sex: Female
  Weight: 64.41 kg

DRUGS (3)
  1. REMICADE [Suspect]
     Dosage: 2ND INFUSION
     Route: 042
  2. REMICADE [Suspect]
     Dosage: 3RD INFUSION
     Route: 042
  3. REMICADE [Suspect]
     Indication: CROHN'S DISEASE
     Route: 042

REACTIONS (7)
  - FEAR [None]
  - THROAT IRRITATION [None]
  - INFUSION RELATED REACTION [None]
  - HEART RATE IRREGULAR [None]
  - HEART RATE INCREASED [None]
  - MUSCULOSKELETAL STIFFNESS [None]
  - HEADACHE [None]
